FAERS Safety Report 5025806-X (Version None)
Quarter: 2006Q2

REPORT INFORMATION
  Report Type: 
  Country: None (occurrence: None)
  Receive Date: 20060614
  Receipt Date: 20060605
  Transmission Date: 20061013
  Serious: Yes (Other)
  Sender: FDA-Public Use
  Company Number: US-JNJFOC-20060601129

PATIENT
  Sex: Male

DRUGS (1)
  1. REMICADE [Suspect]
     Indication: DRUG USE FOR UNKNOWN INDICATION
     Route: 042

REACTIONS (4)
  - ANTINUCLEAR ANTIBODY POSITIVE [None]
  - COMPLEMENT FACTOR DECREASED [None]
  - DOUBLE STRANDED DNA ANTIBODY [None]
  - PYURIA [None]
